FAERS Safety Report 8234731-2 (Version None)
Quarter: 2012Q1

REPORT INFORMATION
  Report Type: 
  Country: None (occurrence: None)
  Receive Date: 20120326
  Receipt Date: 20120323
  Transmission Date: 20120608
  Serious: No
  Sender: FDA-Public Use
  Company Number: US-PFIZER INC-2012076243

PATIENT
  Sex: Female
  Weight: 89.342 kg

DRUGS (3)
  1. CHANTIX [Suspect]
     Indication: SMOKING CESSATION THERAPY
     Dosage: UNK
     Route: 048
     Dates: start: 20120101
  2. OMEPRAZOLE [Concomitant]
     Indication: IMPAIRED GASTRIC EMPTYING
     Dosage: 40 MG, DAILY
  3. OMEPRAZOLE [Concomitant]
     Indication: GASTROOESOPHAGEAL REFLUX DISEASE

REACTIONS (4)
  - NAUSEA [None]
  - CONSTIPATION [None]
  - FEELING JITTERY [None]
  - ABDOMINAL DISTENSION [None]
